FAERS Safety Report 5656292-4 (Version None)
Quarter: 2008Q1

REPORT INFORMATION
  Report Type: 
  Country: None (occurrence: None)
  Receive Date: 20080309
  Receipt Date: 20071114
  Transmission Date: 20080703
  Serious: No
  Sender: FDA-Public Use
  Company Number: US-BAYER-200712605BCC

PATIENT
  Age: 86 Year
  Sex: Male
  Weight: 76 kg

DRUGS (2)
  1. ALEVE [Suspect]
     Indication: BACK PAIN
     Dosage: UNIT DOSE: 220 MG
     Route: 048
     Dates: start: 20061101, end: 20070806
  2. VITAMINS [Concomitant]

REACTIONS (3)
  - DYSSTASIA [None]
  - FALL [None]
  - MUSCULAR WEAKNESS [None]
